FAERS Safety Report 8287774-7 (Version None)
Quarter: 2012Q2

REPORT INFORMATION
  Report Type: 
  Country: None (occurrence: None)
  Receive Date: 20120416
  Receipt Date: 20120410
  Transmission Date: 20120825
  Serious: Yes (Hospitalization, Other)
  Sender: FDA-Public Use
  Company Number: US-MERCK-1202USA03875

PATIENT
  Age: 79 Year
  Sex: Female

DRUGS (2)
  1. FOSAMAX [Suspect]
     Indication: OSTEOPENIA
     Route: 048
     Dates: start: 20020101, end: 20100101
  2. BONIVA [Concomitant]
     Indication: OSTEOPENIA
     Route: 065
     Dates: start: 20100101, end: 20100101

REACTIONS (3)
  - DIABETES MELLITUS [None]
  - FEMUR FRACTURE [None]
  - DEVICE FAILURE [None]
